FAERS Safety Report 18766553 (Version 1)
Quarter: 2021Q1

REPORT INFORMATION
  Report Type: Spontaneous
  Country: CN (occurrence: CN)
  Receive Date: 20210121
  Receipt Date: 20210121
  Transmission Date: 20210419
  Serious: Yes (Hospitalization, Other)
  Sender: FDA-Public Use
  Company Number: CN-009507513-2101CHN009483

PATIENT
  Age: 44 Year
  Sex: Male
  Weight: 95 kg

DRUGS (5)
  1. SODIUM CHLORIDE. [Concomitant]
     Active Substance: SODIUM CHLORIDE
     Indication: HEPATIC CANCER STAGE III
     Dosage: 100 ML, Q3W (CONFLICT INFORMATION, ALSO REPORTED AS DAILY AND ONCE)
     Route: 041
     Dates: start: 20201212, end: 20201212
  2. LENVATINIB MESYLATE [Suspect]
     Active Substance: LENVATINIB MESYLATE
     Indication: HEPATIC CANCER STAGE III
     Dosage: 12 MG QD (ALSO REPORTED AS ONCE)
     Route: 048
     Dates: start: 20201205, end: 20210112
  3. KEYTRUDA [Suspect]
     Active Substance: PEMBROLIZUMAB
     Indication: HEPATIC CANCER STAGE III
     Dosage: 200 MG Q3W (ALSO REPORTED AS DAILY AND ONCE, CONFLICT INFORMATION)
     Route: 041
     Dates: start: 20201212, end: 20201212
  4. KEYTRUDA [Suspect]
     Active Substance: PEMBROLIZUMAB
     Dosage: 200 MG Q3W (ALSO REPORTED AS DAILY, CONFLICT INFORMATION)
     Route: 041
     Dates: start: 20210106, end: 20210106
  5. SODIUM CHLORIDE. [Concomitant]
     Active Substance: SODIUM CHLORIDE
     Dosage: 100 ML, Q3W (CONFLICT INFORMATION, ALSO REPORTED AS DAILY AND ONCE)
     Route: 041
     Dates: start: 20210106, end: 20210106

REACTIONS (3)
  - Palmar-plantar erythrodysaesthesia syndrome [Recovering/Resolving]
  - Myelosuppression [Recovering/Resolving]
  - Inappropriate schedule of product administration [Unknown]

NARRATIVE: CASE EVENT DATE: 20210105
